FAERS Safety Report 10268909 (Version 1)
Quarter: 2014Q2

REPORT INFORMATION
  Report Type: Spontaneous
  Country: SE (occurrence: SE)
  Receive Date: 20140630
  Receipt Date: 20140630
  Transmission Date: 20141212
  Serious: Yes (Hospitalization)
  Sender: FDA-Public Use
  Company Number: SE-VERTEX PHARMACEUTICALS (CANADA)-2014-002912

PATIENT
  Age: 36 Year
  Sex: Male

DRUGS (4)
  1. INCIVO [Suspect]
     Indication: HEPATIC CIRRHOSIS
     Route: 048
     Dates: start: 20140519
  2. INCIVO [Suspect]
     Dosage: UNK
     Route: 048
  3. INCIVO [Suspect]
     Dosage: UNK
     Route: 048
     Dates: start: 20140519
  4. INCIVO [Suspect]
     Dosage: UNK
     Route: 048

REACTIONS (6)
  - Papule [Unknown]
  - Pyrexia [Unknown]
  - Swelling face [Unknown]
  - Erythema [Unknown]
  - Pruritus [Unknown]
  - Rash macular [Unknown]
